FAERS Safety Report 16304194 (Version 2)
Quarter: 2019Q3

REPORT INFORMATION
  Report Type: Report from Study
  Country: US (occurrence: JP)
  Receive Date: 20190507
  Receipt Date: 20190917
  Transmission Date: 20191004
  Serious: Yes (Hospitalization)
  Sender: FDA-Public Use
  Company Number: JP-BIOCODEX SA-201800653

PATIENT
  Age: 10 Month
  Sex: Female
  Weight: 5.7 kg

DRUGS (11)
  1. CLOBAZAM. [Concomitant]
     Active Substance: CLOBAZAM
     Dosage: 6 MG, QD
     Route: 048
     Dates: start: 20170718
  2. SODIUM VALPROATE [Concomitant]
     Active Substance: VALPROATE SODIUM
     Indication: SEVERE MYOCLONIC EPILEPSY OF INFANCY
     Dosage: 200 MG, QD
     Route: 048
     Dates: end: 20170816
  3. MIDAZOLAM [Concomitant]
     Active Substance: MIDAZOLAM HYDROCHLORIDE
     Indication: SEVERE MYOCLONIC EPILEPSY OF INFANCY
     Dosage: 2 MG, UNK
     Route: 041
     Dates: start: 20170823, end: 20170828
  4. SODIUM VALPROATE [Concomitant]
     Active Substance: VALPROATE SODIUM
     Dosage: 150 MG, QD
     Route: 048
     Dates: start: 20170817
  5. FERRIC PYROPHOSPHATE, SOLUBLE [Concomitant]
     Indication: PRODUCT USED FOR UNKNOWN INDICATION
     Dosage: 4 ML, QD
     Route: 048
  6. DIACOMIT [Suspect]
     Active Substance: STIRIPENTOL
     Indication: SEVERE MYOCLONIC EPILEPSY OF INFANCY
     Dosage: 75 MG, QD
     Route: 048
     Dates: start: 20170802, end: 20170816
  7. CLOBAZAM. [Concomitant]
     Active Substance: CLOBAZAM
     Indication: SEVERE MYOCLONIC EPILEPSY OF INFANCY
     Route: 048
     Dates: end: 20170705
  8. CLOBAZAM. [Concomitant]
     Active Substance: CLOBAZAM
     Dosage: 4.5 MG, QD
     Route: 048
     Dates: start: 20170706, end: 20170717
  9. SODIUM VALPROATE [Concomitant]
     Active Substance: VALPROATE SODIUM
     Dosage: 150 MG, QD
     Route: 048
     Dates: start: 20170817
  10. LEVOCARNITINE. [Concomitant]
     Active Substance: LEVOCARNITINE
     Indication: PROPHYLAXIS
     Dosage: 2.5 ML, QD
     Route: 048
  11. DIAZEPAM. [Concomitant]
     Active Substance: DIAZEPAM
     Indication: SEVERE MYOCLONIC EPILEPSY OF INFANCY
     Dosage: 4 MG, UNK
     Route: 065
     Dates: start: 20170823, end: 20170823

REACTIONS (2)
  - Seizure cluster [Unknown]
  - Status epilepticus [Recovered/Resolved]

NARRATIVE: CASE EVENT DATE: 20170823
